FAERS Safety Report 19417575 (Version 1)
Quarter: 2021Q2

REPORT INFORMATION
  Report Type: Spontaneous
  Country: US (occurrence: US)
  Receive Date: 20210615
  Receipt Date: 20210615
  Transmission Date: 20210717
  Serious: Yes (Other)
  Sender: FDA-Public Use
  Company Number: US-TOLMAR, INC.-21US027916

PATIENT
  Age: 48 Year
  Sex: Female

DRUGS (1)
  1. ELIGARD [Suspect]
     Active Substance: LEUPROLIDE ACETATE
     Indication: OVARIAN GRANULOSA CELL TUMOUR
     Dosage: UNK

REACTIONS (3)
  - Off label use [Unknown]
  - Ovarian granulosa cell tumour [Unknown]
  - Neoplasm progression [Unknown]
